FAERS Safety Report 6291821-1 (Version None)
Quarter: 2009Q3

REPORT INFORMATION
  Report Type: 
  Country: None (occurrence: None)
  Receive Date: 20090729
  Receipt Date: 20090717
  Transmission Date: 20100115
  Serious: Yes (Hospitalization)
  Sender: FDA-Public Use
  Company Number: 2009AL001477

PATIENT
  Age: 62 Year
  Sex: Female

DRUGS (25)
  1. DIGOXIN [Suspect]
     Dosage: 0.25MG, DAILY, PO
     Route: 048
  2. ALDACTONE [Concomitant]
  3. LIPITOR [Concomitant]
  4. NEXIUM [Concomitant]
  5. COLACE [Concomitant]
  6. FIBERCON [Concomitant]
  7. VITAMIN E [Concomitant]
  8. CALCIUM [Concomitant]
  9. ALLEGRA [Concomitant]
  10. ZOLOFT [Concomitant]
  11. ROBAXIN [Concomitant]
  12. SYNTHROID [Concomitant]
  13. TOPROL-XL [Concomitant]
  14. FISH OIL [Concomitant]
  15. METFORMIN [Concomitant]
  16. KLOR-CON [Concomitant]
  17. FUROSEMIDE [Concomitant]
  18. METOPROLOL TARTRATE [Concomitant]
  19. DIAZEPAM [Concomitant]
  20. LYRICA [Concomitant]
  21. CELEBREX [Concomitant]
  22. TRAMADOL HCL [Concomitant]
  23. SERTRALINE [Concomitant]
  24. REPLIVA [Concomitant]
  25. VERAMYST SPRAY [Concomitant]

REACTIONS (18)
  - ANXIETY [None]
  - ATRIAL FIBRILLATION [None]
  - BLOOD URINE PRESENT [None]
  - CHEST PAIN [None]
  - DEHYDRATION [None]
  - ECONOMIC PROBLEM [None]
  - FATIGUE [None]
  - FEAR [None]
  - GASTROENTERITIS [None]
  - HEART RATE DECREASED [None]
  - HYPOKALAEMIA [None]
  - HYPOMAGNESAEMIA [None]
  - ILL-DEFINED DISORDER [None]
  - ISCHAEMIA [None]
  - MULTIPLE INJURIES [None]
  - NAUSEA [None]
  - NEPHROLITHIASIS [None]
  - VOMITING [None]
